FAERS Safety Report 9299970 (Version 3)
Quarter: 2013Q4

REPORT INFORMATION
  Report Type: Spontaneous
  Country: US (occurrence: None)
  Receive Date: 20130107
  Receipt Date: 20131226
  Transmission Date: 20140711
  Serious: Yes (Other)
  Sender: FDA-Public Use
  Company Number: PHHY2012US105966

PATIENT
  Age: 37 Year
  Sex: Female
  Weight: 83.9 kg

DRUGS (6)
  1. GILENYA [Suspect]
     Indication: MULTIPLE SCLEROSIS
     Route: 048
     Dates: start: 201102, end: 2011
  2. NEURONTIN (GABAPENTIN) [Concomitant]
  3. CYMBALTA (DULOXETINE HYDROCHLORIDE) [Concomitant]
  4. VITAMIN D (ERGOCALCIFEROL) [Concomitant]
  5. FISH OIL (FISH OIL) [Concomitant]
  6. NAPROXEN (NAPROXEN) [Concomitant]

REACTIONS (3)
  - Musculoskeletal pain [None]
  - Fall [None]
  - Arthralgia [None]
